FAERS Safety Report 4813352-5 (Version None)
Quarter: 2005Q4

REPORT INFORMATION
  Report Type: 
  Country: None (occurrence: None)
  Receive Date: 20051028
  Receipt Date: 20051018
  Transmission Date: 20060501
  Serious: Yes (Death, Other)
  Sender: FDA-Public Use
  Company Number: ES-AVENTIS-200519306GDDC

PATIENT
  Age: 34 Year
  Sex: Male

DRUGS (7)
  1. RIFALDIN [Suspect]
     Indication: PRURITUS
     Route: 048
     Dates: start: 20040219
  2. RIFALDIN [Suspect]
     Route: 048
     Dates: start: 20040310
  3. RIFALDIN [Suspect]
     Route: 048
     Dates: start: 20040510
  4. DEXCHLORPHENIRAMINE [Concomitant]
  5. TEMOZOLOMIDE [Concomitant]
  6. ALL OTHER THERAPEUTIC PRODUCTS [Concomitant]
  7. IMMUNOTHERAPY [Concomitant]

REACTIONS (4)
  - DYSPNOEA [None]
  - INSOMNIA [None]
  - MALIGNANT MELANOMA [None]
  - PRURITUS [None]
